FAERS Safety Report 10577455 (Version 1)
Quarter: 2014Q4

REPORT INFORMATION
  Report Type: Spontaneous
  Country: FR (occurrence: FR)
  Receive Date: 20141111
  Receipt Date: 20141111
  Transmission Date: 20150529
  Serious: Yes (Other)
  Sender: FDA-Public Use
  Company Number: FR-ELI_LILLY_AND_COMPANY-FR201411000182

PATIENT
  Age: 60 Year
  Sex: Female

DRUGS (16)
  1. LEVOTHYROX [Suspect]
     Active Substance: LEVOTHYROXINE
     Dosage: 100 UG, UNKNOWN
     Route: 048
     Dates: start: 20140820
  2. TRIATEC                            /00885601/ [Suspect]
     Active Substance: RAMIPRIL
     Dosage: 5 MG, UNKNOWN
     Route: 048
  3. COVERAM ARG [Concomitant]
     Dosage: 5 MG, UNKNOWN
     Route: 065
  4. LEVOTHYROX [Suspect]
     Active Substance: LEVOTHYROXINE
     Indication: HYPOTHYROIDISM
     Dosage: 75 UG, UNKNOWN
     Route: 048
     Dates: end: 20140819
  5. CLOPIXOL                           /00876702/ [Suspect]
     Active Substance: ZUCLOPENTHIXOL ACETATE
     Indication: SCHIZOAFFECTIVE DISORDER
     Dosage: 10 GTT, EACH MORNING
     Route: 048
     Dates: start: 20140904, end: 20140910
  6. CLOPIXOL                           /00876702/ [Suspect]
     Active Substance: ZUCLOPENTHIXOL ACETATE
     Dosage: 30 GTT, EACH EVENING
     Route: 048
     Dates: start: 20140911
  7. ZYPREXA [Suspect]
     Active Substance: OLANZAPINE
     Dosage: 10 MG, UNKNOWN
     Route: 048
     Dates: start: 20140828, end: 20140904
  8. CLOPIXOL                           /00876702/ [Suspect]
     Active Substance: ZUCLOPENTHIXOL ACETATE
     Dosage: 10 GTT, EACH EVENING
     Route: 048
     Dates: start: 20140904, end: 20140910
  9. AMLODIPINE [Suspect]
     Active Substance: AMLODIPINE BESYLATE
     Dosage: 10 MG, UNKNOWN
     Route: 048
  10. ZYPREXA [Suspect]
     Active Substance: OLANZAPINE
     Indication: SCHIZOAFFECTIVE DISORDER
     Dosage: 5 MG, UNKNOWN
     Route: 048
     Dates: start: 20140821, end: 20140827
  11. DEPAKOTE [Suspect]
     Active Substance: DIVALPROEX SODIUM
     Dosage: 500 MG, BID
     Route: 048
     Dates: end: 20140906
  12. TERCIAN                            /00759301/ [Suspect]
     Active Substance: CYAMEMAZINE
     Indication: SCHIZOAFFECTIVE DISORDER
     Dosage: 12.5 MG, UNKNOWN
     Route: 048
  13. TERCIAN                            /00759301/ [Suspect]
     Active Substance: CYAMEMAZINE
     Dosage: 25 MG, UNKNOWN
     Route: 048
     Dates: start: 20140904
  14. COVERAM ARG [Concomitant]
     Dosage: 10 MG, UNKNOWN
     Route: 065
  15. TRANXENE T-TAB [Suspect]
     Active Substance: CLORAZEPATE DIPOTASSIUM
     Dosage: 20 MG, BID
     Route: 048
     Dates: start: 20140904
  16. TERALITHE [Concomitant]
     Active Substance: LITHIUM CARBONATE
     Indication: SCHIZOAFFECTIVE DISORDER
     Dosage: UNK, UNKNOWN
     Route: 065

REACTIONS (2)
  - Neutropenia [Recovered/Resolved]
  - Drug ineffective [Unknown]

NARRATIVE: CASE EVENT DATE: 20140905
